FAERS Safety Report 7170907-3 (Version None)
Quarter: 2010Q4

REPORT INFORMATION
  Report Type: 
  Country: None (occurrence: None)
  Receive Date: 20101217
  Receipt Date: 20101206
  Transmission Date: 20110411
  Serious: Yes (Disabling)
  Sender: FDA-Public Use
  Company Number: US-AMGEN-USASP2010002878

PATIENT

DRUGS (13)
  1. ENBREL [Suspect]
     Indication: RHEUMATOID ARTHRITIS
     Dosage: 50 MG, QWK
     Dates: start: 20040101, end: 20100601
  2. ENBREL [Suspect]
     Dosage: 50 MG, QWK
     Dates: start: 20070829, end: 20100518
  3. GOLIMUMAB [Concomitant]
  4. METHOTREXATE [Concomitant]
     Dosage: UNK UNK, QWK
  5. PREDNISONE [Concomitant]
     Dosage: 4 MG, QD
  6. POTASSIUM [Concomitant]
  7. LASIX [Concomitant]
     Dosage: 40 MG, QD
  8. MULTI-VITAMINS [Concomitant]
  9. CALCIUM WITH VITAMIN D             /00944201/ [Concomitant]
     Dosage: 600 MG, QD
  10. GLUCOSAMINE + CHONDROITIN [Concomitant]
     Dosage: UNK UNK, BID
  11. FISH OIL [Concomitant]
     Dosage: UNK UNK, QD
  12. FOSAMAX [Concomitant]
     Dosage: UNK UNK, QWK
  13. VITAMIN A [Concomitant]
     Dosage: 50.000 IU, QMO

REACTIONS (9)
  - ARTHRALGIA [None]
  - DRUG TOXICITY [None]
  - MOBILITY DECREASED [None]
  - OSTEOPOROSIS [None]
  - RHEUMATOID ARTHRITIS [None]
  - SINUSITIS [None]
  - SYNOVITIS [None]
  - TRIGGER FINGER [None]
  - VITAMIN D DEFICIENCY [None]
